FAERS Safety Report 8387851-6 (Version None)
Quarter: 2012Q2

REPORT INFORMATION
  Report Type: 
  Country: None (occurrence: None)
  Receive Date: 20120525
  Receipt Date: 20120306
  Transmission Date: 20120825
  Serious: No
  Sender: FDA-Public Use
  Company Number: US-BRISTOL-MYERS SQUIBB COMPANY-16415531

PATIENT
  Age: 67 Year
  Sex: Female

DRUGS (6)
  1. ACIPHEX [Concomitant]
  2. KOMBIGLYZE XR [Suspect]
  3. HYZAAR [Concomitant]
  4. PRAVASTATIN [Concomitant]
  5. GLUMETZA [Concomitant]
  6. VITAMIN TAB [Concomitant]

REACTIONS (5)
  - FUNGAL INFECTION [None]
  - LIP SWELLING [None]
  - DIZZINESS [None]
  - SOMNOLENCE [None]
  - ASTHENIA [None]
